FAERS Safety Report 23202722 (Version 1)
Quarter: 2023Q4

REPORT INFORMATION
  Report Type: Report from Study
  Country: US (occurrence: US)
  Receive Date: 20231120
  Receipt Date: 20231120
  Transmission Date: 20240110
  Serious: Yes (Other)
  Sender: FDA-Public Use
  Company Number: US-MYLANLABS-2023M1121166

PATIENT
  Age: 38 Year
  Sex: Female

DRUGS (1)
  1. PREDNISONE [Suspect]
     Active Substance: PREDNISONE
     Indication: Dyspnoea
     Dosage: 40 MILLIGRAM, BID
     Route: 065
     Dates: start: 2020

REACTIONS (1)
  - Drug ineffective [Unknown]

NARRATIVE: CASE EVENT DATE: 20200101
